FAERS Safety Report 21029066 (Version 1)
Quarter: 2022Q2

REPORT INFORMATION
  Report Type: Spontaneous
  Country: US (occurrence: US)
  Receive Date: 20220630
  Receipt Date: 20220630
  Transmission Date: 20220721
  Serious: Yes (Other)
  Sender: FDA-Public Use
  Company Number: US-SA-SAC20220629001586

PATIENT
  Sex: Female

DRUGS (4)
  1. DUPIXENT [Suspect]
     Active Substance: DUPILUMAB
     Indication: Psoriasis
     Dosage: UNK
  2. STELARA [Suspect]
     Active Substance: USTEKINUMAB
     Indication: Product used for unknown indication
  3. VALTREX [Suspect]
     Active Substance: VALACYCLOVIR HYDROCHLORIDE
     Indication: Product used for unknown indication
  4. ADALIMUMAB [Suspect]
     Active Substance: ADALIMUMAB
     Indication: Product used for unknown indication

REACTIONS (11)
  - Cataract [Unknown]
  - Eye infection [Unknown]
  - Abdominal discomfort [Unknown]
  - Eye pain [Unknown]
  - Illness [Unknown]
  - Rash vesicular [Unknown]
  - Pain in extremity [Unknown]
  - Psoriasis [Unknown]
  - Rash [Unknown]
  - Syringe issue [Unknown]
  - Product use in unapproved indication [Unknown]
